FAERS Safety Report 12412322 (Version 1)
Quarter: 2016Q2

REPORT INFORMATION
  Report Type: Spontaneous
  Country: CN (occurrence: CN)
  Receive Date: 20160527
  Receipt Date: 20160527
  Transmission Date: 20160815
  Serious: Yes (Other)
  Sender: FDA-Public Use
  Company Number: CN-BRISTOL-MYERS SQUIBB COMPANY-BMS-2016-039781

PATIENT
  Sex: Male

DRUGS (1)
  1. NIVOLUMAB [Suspect]
     Active Substance: NIVOLUMAB
     Indication: LUNG NEOPLASM MALIGNANT
     Dosage: N/A
     Route: 042
     Dates: start: 20160508

REACTIONS (3)
  - Respiratory tract irritation [Unknown]
  - Pneumonitis [Unknown]
  - Choking [Unknown]

NARRATIVE: CASE EVENT DATE: 20160513
